FAERS Safety Report 5334666-9 (Version None)
Quarter: 2007Q2

REPORT INFORMATION
  Report Type: 
  Country: None (occurrence: None)
  Receive Date: 20070525
  Receipt Date: 20070522
  Transmission Date: 20071010
  Serious: Yes (Other)
  Sender: FDA-Public Use
  Company Number: B0472267A

PATIENT
  Age: 30 Year
  Sex: Male

DRUGS (3)
  1. ADARTREL [Suspect]
     Indication: RESTLESS LEGS SYNDROME
     Route: 065
  2. ZOLPIDEM [Concomitant]
     Indication: RESTLESS LEGS SYNDROME
     Route: 065
  3. CLONAZEPAM [Concomitant]
     Indication: RESTLESS LEGS SYNDROME
     Route: 065

REACTIONS (6)
  - ANXIETY [None]
  - DRUG WITHDRAWAL SYNDROME [None]
  - FEAR [None]
  - HALLUCINATION [None]
  - INCREASED APPETITE [None]
  - RESTLESSNESS [None]
